FAERS Safety Report 5117511-6 (Version None)
Quarter: 2006Q3

REPORT INFORMATION
  Report Type: 
  Country: None (occurrence: None)
  Receive Date: 20060929
  Receipt Date: 20050901
  Transmission Date: 20061208
  Serious: Yes (Hospitalization)
  Sender: FDA-Public Use
  Company Number: FR-ROCHE-416295

PATIENT
  Age: 32 Year
  Sex: Female

DRUGS (2)
  1. ACCUTANE [Suspect]
     Indication: ACNE
     Route: 048
     Dates: start: 20050115, end: 20050715
  2. ZYPREXA [Concomitant]
     Indication: SCHIZOPHRENIA
     Dosage: FIRST GIVEN 7.5 MG DAILY, THEN DOSAGE INCREASE IN JULY 2005.
     Dates: start: 20000615

REACTIONS (2)
  - DELIRIUM [None]
  - DISEASE PROGRESSION [None]
